FAERS Safety Report 4559271-3 (Version None)
Quarter: 2005Q1

REPORT INFORMATION
  Report Type: 
  Country: None (occurrence: None)
  Receive Date: 20050124
  Receipt Date: 20050112
  Transmission Date: 20050727
  Serious: Yes (Disabling)
  Sender: FDA-Public Use
  Company Number: FR-ROCHE-392287

PATIENT
  Age: 70 Year
  Sex: Male

DRUGS (3)
  1. PEGASYS [Suspect]
     Route: 058
     Dates: start: 20030415, end: 20030727
  2. MANTADIX [Concomitant]
     Route: 048
     Dates: start: 20030415, end: 20030727
  3. REBETOL [Concomitant]
     Route: 048
     Dates: start: 20030415, end: 20030727

REACTIONS (3)
  - CEREBROVASCULAR ACCIDENT [None]
  - DIPLOPIA [None]
  - FACIAL PALSY [None]
